FAERS Safety Report 7488262-8 (Version None)
Quarter: 2011Q2

REPORT INFORMATION
  Report Type: 
  Country: None (occurrence: None)
  Receive Date: 20110511
  Receipt Date: 20110428
  Transmission Date: 20111010
  Serious: Yes (Other)
  Sender: FDA-Public Use
  Company Number: US-1186020

PATIENT
  Age: 80 Year
  Sex: Male

DRUGS (1)
  1. TRAVATAN [Suspect]
     Dosage: (OPHTHALMIC)
     Route: 047

REACTIONS (3)
  - HYPOTENSION [None]
  - BRADYCARDIA [None]
  - CONFUSIONAL STATE [None]
